FAERS Safety Report 19180361 (Version 3)
Quarter: 2025Q2

REPORT INFORMATION
  Report Type: Spontaneous
  Country: DE (occurrence: DE)
  Receive Date: 20210426
  Receipt Date: 20250626
  Transmission Date: 20250717
  Serious: Yes (Death, Hospitalization, Other)
  Sender: AUROBINDO
  Company Number: DE-MYLANLABS-2021M1023731

PATIENT
  Age: 25 Year
  Sex: Female

DRUGS (5)
  1. MODAFINIL [Suspect]
     Active Substance: MODAFINIL
     Indication: Product used for unknown indication
     Route: 048
  2. METHYLPHENIDATE [Suspect]
     Active Substance: METHYLPHENIDATE
     Indication: Product used for unknown indication
     Route: 048
  3. AMPHETAMINE [Suspect]
     Active Substance: AMPHETAMINE
     Indication: Product used for unknown indication
     Route: 048
  4. ALPRAZOLAM [Concomitant]
     Active Substance: ALPRAZOLAM
     Indication: Product used for unknown indication
     Route: 048
  5. GABAPENTIN [Concomitant]
     Active Substance: GABAPENTIN
     Indication: Product used for unknown indication
     Route: 048

REACTIONS (9)
  - Brain oedema [Fatal]
  - Drug abuse [Fatal]
  - Respiratory distress [Fatal]
  - Cardiac arrest [Fatal]
  - Delirium [Fatal]
  - Metabolic acidosis [Fatal]
  - Agitation [Fatal]
  - Body temperature increased [Fatal]
  - Poisoning [Fatal]
